FAERS Safety Report 12531451 (Version 1)
Quarter: 2016Q3

REPORT INFORMATION
  Report Type: Spontaneous
  Country: US (occurrence: US)
  Receive Date: 20160706
  Receipt Date: 20160706
  Transmission Date: 20161109
  Serious: No
  Sender: FDA-Public Use
  Company Number: US-MALLINCKRODT-T201600779

PATIENT

DRUGS (1)
  1. OXYCODONE [Suspect]
     Active Substance: OXYCODONE
     Indication: PAIN
     Dosage: 30 MG UNKNOWN
     Route: 065

REACTIONS (7)
  - Antisocial behaviour [Unknown]
  - Personality change [Unknown]
  - Irritability [Unknown]
  - Drug ineffective [Unknown]
  - Depressed mood [Unknown]
  - Drug effect decreased [Unknown]
  - Abdominal discomfort [Unknown]
